FAERS Safety Report 6684109-8 (Version None)
Quarter: 2010Q2

REPORT INFORMATION
  Report Type: 
  Country: None (occurrence: None)
  Receive Date: 20100416
  Receipt Date: 20100406
  Transmission Date: 20101027
  Serious: Yes (Other)
  Sender: FDA-Public Use
  Company Number: PHHY2010IT21752

PATIENT
  Sex: Female

DRUGS (1)
  1. AREDIA [Suspect]
     Indication: LIP NEOPLASM
     Dosage: UNK
     Dates: start: 20030101, end: 20030401

REACTIONS (2)
  - OSTEONECROSIS [None]
  - SURGERY [None]
